FAERS Safety Report 4721992-7 (Version None)
Quarter: 2005Q3

REPORT INFORMATION
  Report Type: 
  Country: None (occurrence: None)
  Receive Date: 20050720
  Receipt Date: 20050707
  Transmission Date: 20060218
  Serious: Yes (Hospitalization)
  Sender: FDA-Public Use
  Company Number: 106540ISR

PATIENT
  Age: 36 Year
  Sex: Male

DRUGS (2)
  1. GLATIRAMER ACETATE [Suspect]
     Indication: MULTIPLE SCLEROSIS
     Dosage: SUBCUTANEOUS
     Route: 058
     Dates: end: 20050101
  2. GLATIRAMER ACETATE [Suspect]
     Indication: MULTIPLE SCLEROSIS
     Dosage: SUBCUTANEOUS
     Route: 058
     Dates: start: 20040909, end: 20050421

REACTIONS (11)
  - ABDOMINAL PAIN UPPER [None]
  - CHEST PAIN [None]
  - CHILLS [None]
  - DRY MOUTH [None]
  - DYSPNOEA [None]
  - EYE SWELLING [None]
  - FLUSHING [None]
  - HOT FLUSH [None]
  - MUSCLE SPASMS [None]
  - OCULAR HYPERAEMIA [None]
  - SWELLING FACE [None]
